FAERS Safety Report 16296921 (Version 2)
Quarter: 2019Q3

REPORT INFORMATION
  Report Type: Spontaneous
  Country: FR (occurrence: FR)
  Receive Date: 20190510
  Receipt Date: 20190826
  Transmission Date: 20191004
  Serious: Yes (Other)
  Sender: FDA-Public Use
  Company Number: FR-ROCHE-2315970

PATIENT
  Age: 72 Year
  Sex: Female

DRUGS (2)
  1. FEMARA [Concomitant]
     Active Substance: LETROZOLE
     Route: 048
  2. HERCEPTIN [Suspect]
     Active Substance: TRASTUZUMAB
     Indication: INVASIVE DUCTAL BREAST CARCINOMA
     Dosage: 600 MG/5 ML
     Route: 058
     Dates: start: 20180924, end: 20190311

REACTIONS (1)
  - Pericardial effusion [Not Recovered/Not Resolved]

NARRATIVE: CASE EVENT DATE: 20190308
